FAERS Safety Report 16349179 (Version 1)
Quarter: 2019Q2

REPORT INFORMATION
  Report Type: Report from Study
  Country: DE (occurrence: DE)
  Receive Date: 20190523
  Receipt Date: 20190523
  Transmission Date: 20190711
  Serious: Yes (Other)
  Sender: FDA-Public Use
  Company Number: DE-AMGEN-DEUNI2019079388

PATIENT
  Age: 69 Year
  Sex: Male
  Weight: 65 kg

DRUGS (8)
  1. FLUOROURACIL. [Suspect]
     Active Substance: FLUOROURACIL
     Indication: COLORECTAL CANCER METASTATIC
     Dosage: 692 MILLIGRAM
     Route: 040
     Dates: start: 20190410
  2. DOXYCYCLIN-RATIOPHARM [Concomitant]
     Indication: RASH
     Dosage: 50 MILLIGRAM, QD
     Route: 048
     Dates: start: 20190424
  3. FOLINIC ACID [Suspect]
     Active Substance: LEUCOVORIN
     Indication: COLORECTAL CANCER METASTATIC
     Dosage: 692 MILLIGRAM
     Route: 065
     Dates: start: 20190410
  4. OXALIPLATIN. [Suspect]
     Active Substance: OXALIPLATIN
     Dosage: 138 MILLIGRAM
     Route: 065
     Dates: start: 20190508
  5. PANITUMUMAB [Suspect]
     Active Substance: PANITUMUMAB
     Indication: COLORECTAL CANCER METASTATIC
     Dosage: 390 MILLIGRAM
     Route: 042
     Dates: start: 20190410
  6. ONDANSETRON BETA [Concomitant]
     Indication: NAUSEA
     Dosage: 8 MILLIGRAM, PER CYCLE
     Route: 042
     Dates: start: 20190410
  7. FLUOROURACIL. [Suspect]
     Active Substance: FLUOROURACIL
     Dosage: 4152 MILLIGRAM
     Route: 042
     Dates: start: 20190410
  8. OXALIPLATIN. [Suspect]
     Active Substance: OXALIPLATIN
     Indication: COLORECTAL CANCER METASTATIC
     Dosage: 173 MILLIGRAM
     Route: 065
     Dates: start: 20190410

REACTIONS (1)
  - Polyneuropathy [Not Recovered/Not Resolved]

NARRATIVE: CASE EVENT DATE: 20190508
